FAERS Safety Report 25031359 (Version 1)
Quarter: 2025Q1

REPORT INFORMATION
  Report Type: Spontaneous
  Country: US (occurrence: None)
  Receive Date: 20250301
  Receipt Date: 20250301
  Transmission Date: 20250408
  Serious: Yes (Hospitalization)
  Sender: FDA-CTU
  Company Number: None

PATIENT
  Sex: Male

DRUGS (11)
  1. LENALIDOMIDE [Suspect]
     Active Substance: LENALIDOMIDE
     Indication: Plasma cell myeloma
  2. AMLODIPINE [Concomitant]
     Active Substance: AMLODIPINE BESYLATE
  3. ASPIRIN 81 TAB 81 MG EC [Concomitant]
  4. ASPIRIN LOW TAB 81 MG EC [Concomitant]
  5. ATORVASTATIN [Concomitant]
     Active Substance: ATORVASTATIN
  6. BUPROPION TAB 300MG XL [Concomitant]
  7. CITALOPRAM TAB 20MG [Concomitant]
  8. DEXAMETHASONE [Concomitant]
     Active Substance: DEXAMETHASONE
  9. FAMCICLOVIR TAB 250MG [Concomitant]
  10. LISINOPRIL TAB 40MG [Concomitant]
  11. MELOXICAM [Concomitant]
     Active Substance: MELOXICAM

REACTIONS (1)
  - Respiratory disorder [None]
